FAERS Safety Report 10309694 (Version 3)
Quarter: 2014Q3

REPORT INFORMATION
  Report Type: Spontaneous
  Country: US (occurrence: US)
  Receive Date: 20140717
  Receipt Date: 20140806
  Transmission Date: 20150326
  Serious: Yes (Life-Threatening, Hospitalization, Other)
  Sender: FDA-Public Use
  Company Number: US-AMGEN-USASP2014045830

PATIENT
  Age: 82 Year
  Sex: Male
  Weight: 47.62 kg

DRUGS (15)
  1. ADVAIR HFA [Concomitant]
     Active Substance: FLUTICASONE PROPIONATE\SALMETEROL XINAFOATE
     Dosage: 500/50 ONE PUFF TWICE A DAY
  2. TRAMADOL [Concomitant]
     Active Substance: TRAMADOL
  3. PRAVASTATIN [Concomitant]
     Active Substance: PRAVASTATIN\PRAVASTATIN SODIUM
     Dosage: 20 MG, UNK
  4. BISOPROLOL FUMARATE. [Concomitant]
     Active Substance: BISOPROLOL FUMARATE
     Dosage: 2.5 MG, QD
     Route: 048
  5. ASPIRIN. [Concomitant]
     Active Substance: ASPIRIN
     Dosage: 81 MG, QD
     Route: 048
  6. OMEPRAZOLE                         /00661202/ [Concomitant]
     Dosage: 40 MG, UNK
     Route: 048
  7. VITAMIN D3 [Concomitant]
     Active Substance: CHOLECALCIFEROL
     Dosage: 1000 MG, QD
  8. TYLENOL [Concomitant]
     Active Substance: ACETAMINOPHEN
     Dosage: UNK UNK, TID
  9. VICODIN [Concomitant]
     Active Substance: ACETAMINOPHEN\HYDROCODONE BITARTRATE
     Dosage: 7.5 UNK, UNK
  10. NITROGLYCERIN. [Concomitant]
     Active Substance: NITROGLYCERIN
     Indication: CARDIAC DISORDER
     Route: 060
  11. ENSURE [Concomitant]
     Active Substance: AMINO ACIDS\DEXTROSE\ELECTROLYTES NOS\SOYBEAN OIL\VITAMINS
     Dosage: 12 UNK, QD
  12. MIRALAX [Concomitant]
     Active Substance: POLYETHYLENE GLYCOL 3350
  13. PROLIA [Suspect]
     Active Substance: DENOSUMAB
     Indication: OSTEOPOROSIS
     Dosage: 60 MG, Q6MO
     Route: 058
     Dates: start: 20140306, end: 20140306
  14. SINGULAIR [Concomitant]
     Active Substance: MONTELUKAST SODIUM
     Dosage: 10 MG, QD
     Route: 048
  15. MAGNESIUM OXIDE. [Concomitant]
     Active Substance: MAGNESIUM OXIDE
     Dosage: 400 MG, BID
     Route: 048

REACTIONS (21)
  - Acute myocardial infarction [Recovered/Resolved]
  - Asthma [Unknown]
  - Pain [Not Recovered/Not Resolved]
  - Dyspnoea [Unknown]
  - Skin exfoliation [Unknown]
  - Pain in extremity [Unknown]
  - Rehabilitation therapy [Unknown]
  - Left ventricular dysfunction [Unknown]
  - Pulmonary mass [Not Recovered/Not Resolved]
  - Gastrooesophageal reflux disease [Not Recovered/Not Resolved]
  - Respiratory failure [Recovered/Resolved]
  - Cough [Unknown]
  - Back pain [Unknown]
  - Anxiety [Not Recovered/Not Resolved]
  - Hypoaesthesia [Unknown]
  - Rash [Unknown]
  - Chills [Unknown]
  - Chest pain [Recovered/Resolved]
  - Chronic obstructive pulmonary disease [Recovered/Resolved]
  - Dyspnoea [Not Recovered/Not Resolved]
  - Pleural fibrosis [Not Recovered/Not Resolved]

NARRATIVE: CASE EVENT DATE: 20140316
